FAERS Safety Report 16938070 (Version 2)
Quarter: 2020Q1

REPORT INFORMATION
  Report Type: Spontaneous
  Country: CN (occurrence: CN)
  Receive Date: 20191018
  Receipt Date: 20200102
  Transmission Date: 20200409
  Serious: Yes (Other)
  Sender: FDA-Public Use
  Company Number: CN-GE HEALTHCARE LIFE SCIENCES-2019CSU005209

PATIENT

DRUGS (3)
  1. IODIXANOL. [Suspect]
     Active Substance: IODIXANOL
     Indication: PRODUCT USED FOR UNKNOWN INDICATION
  2. IODIXANOL. [Suspect]
     Active Substance: IODIXANOL
     Indication: SKIN TEST
     Dosage: UNK, SINGLE
     Route: 023
     Dates: start: 2016, end: 2016
  3. IODIXANOL. [Suspect]
     Active Substance: IODIXANOL
     Indication: ANGIOGRAM
     Dosage: UNK, SINGLE
     Route: 013
     Dates: start: 2016, end: 2016

REACTIONS (2)
  - Off label use [Recovered/Resolved]
  - Henoch-Schonlein purpura [Recovered/Resolved]

NARRATIVE: CASE EVENT DATE: 2016
